FAERS Safety Report 10164631 (Version 1)
Quarter: 2014Q2

REPORT INFORMATION
  Report Type: Spontaneous
  Country: US (occurrence: US)
  Receive Date: 20140510
  Receipt Date: 20140510
  Transmission Date: 20141212
  Serious: No
  Sender: FDA-Public Use
  Company Number: US-BRISTOL-MYERS SQUIBB COMPANY-20131504

PATIENT
  Age: 40 Year
  Sex: Male
  Weight: 135.6 kg

DRUGS (4)
  1. BYDUREON [Suspect]
     Indication: TYPE 2 DIABETES MELLITUS
     Dates: start: 20140118
  2. METFORMIN HCL [Suspect]
  3. AMARYL [Suspect]
  4. LANTUS [Suspect]
     Dosage: 50 UNITS IN THE AM, AND 75 UNITS AT NIGHT

REACTIONS (1)
  - Blood glucose increased [Unknown]
